FAERS Safety Report 5278800-8 (Version None)
Quarter: 2007Q1

REPORT INFORMATION
  Report Type: 
  Country: None (occurrence: None)
  Receive Date: 20061213
  Receipt Date: 20050407
  Transmission Date: 20070707
  Serious: Yes (Other)
  Sender: FDA-Public Use
  Company Number: 2005UW05388

PATIENT
  Age: 53 Year
  Sex: Male
  Weight: 72.574 kg

DRUGS (5)
  1. SEROQUEL [Suspect]
     Dosage: 25 MG PO
     Route: 048
  2. NEXIUM [Concomitant]
  3. CELEXA [Concomitant]
  4. ATIVAN [Concomitant]
  5. TYLENOL [Concomitant]

REACTIONS (2)
  - MEDICATION ERROR [None]
  - MUSCLE SPASMS [None]
